FAERS Safety Report 9271073 (Version 1)
Quarter: 2013Q2

REPORT INFORMATION
  Report Type: Spontaneous
  Country: US (occurrence: US)
  Receive Date: 20130506
  Receipt Date: 20130506
  Transmission Date: 20140414
  Serious: No
  Sender: FDA-Public Use
  Company Number: US-JNJFOC-20130414728

PATIENT
  Age: 88 Year
  Sex: Female
  Weight: 63.5 kg

DRUGS (5)
  1. DURAGESIC [Suspect]
     Indication: SPINAL OSTEOARTHRITIS
     Route: 062
     Dates: start: 20130422
  2. MELOXICAM [Concomitant]
     Indication: ARTHRITIS
     Route: 048
     Dates: start: 2003
  3. LOSARTAN POTASSIUM [Concomitant]
     Indication: BLOOD PRESSURE
     Route: 048
  4. TOVIAZ [Concomitant]
     Indication: BLADDER DISORDER
     Route: 048
     Dates: start: 2012
  5. NEXIUM [Concomitant]
     Indication: GASTROOESOPHAGEAL REFLUX DISEASE
     Route: 048
     Dates: start: 2003

REACTIONS (3)
  - Drug administered at inappropriate site [Not Recovered/Not Resolved]
  - Therapeutic response decreased [Not Recovered/Not Resolved]
  - Product quality issue [Unknown]
